FAERS Safety Report 19398135 (Version 4)
Quarter: 2022Q2

REPORT INFORMATION
  Report Type: Spontaneous
  Country: BE (occurrence: IN)
  Receive Date: 20210610
  Receipt Date: 20220411
  Transmission Date: 20220721
  Serious: Yes (Hospitalization, Other)
  Sender: FDA-Public Use
  Company Number: BE-SA-2021SA168253

PATIENT
  Age: 49 Year
  Sex: Male

DRUGS (15)
  1. ADRIAMYCIN [Suspect]
     Active Substance: DOXORUBICIN HYDROCHLORIDE
     Indication: Hodgkin^s disease nodular sclerosis stage IV
     Dosage: ESCALATED BEACOPP REGIMEN (4 CYCLES)
     Dates: start: 200602, end: 200604
  2. ADRIAMYCIN [Suspect]
     Active Substance: DOXORUBICIN HYDROCHLORIDE
     Dosage: BASELINE BEACOPP PATTERN (4 CYCLES)
     Dates: start: 2006
  3. BLEOMYCIN [Suspect]
     Active Substance: BLEOMYCIN SULFATE
     Indication: Hodgkin^s disease nodular sclerosis stage IV
     Dosage: BASELINE BEACOPP PATTERN (4 CYCLES)
     Dates: start: 2006
  4. BLEOMYCIN [Suspect]
     Active Substance: BLEOMYCIN SULFATE
     Dosage: BASELINE BEACOPP PATTERN (4 CYCLES)
     Dates: start: 200602, end: 200604
  5. PROCARBAZINE [Suspect]
     Active Substance: PROCARBAZINE
     Indication: Hodgkin^s disease nodular sclerosis stage IV
     Dosage: BASELINE BEACOPP PATTERN (4 CYCLES)
     Dates: start: 200602, end: 200604
  6. PROCARBAZINE [Suspect]
     Active Substance: PROCARBAZINE
     Dosage: BASELINE BEACOPP PATTERN (4 CYCLES)
     Dates: start: 2006
  7. ONCOVIN [Suspect]
     Active Substance: VINCRISTINE SULFATE
     Indication: Hodgkin^s disease nodular sclerosis stage IV
     Dosage: ESCALATED BEACOPP REGIMEN (4 CYCLES)
     Dates: start: 200602, end: 200604
  8. ONCOVIN [Suspect]
     Active Substance: VINCRISTINE SULFATE
     Dosage: ESCALATED BEACOPP REGIMEN (4 CYCLES)
     Dates: start: 2006
  9. PREDNISONE [Suspect]
     Active Substance: PREDNISONE
     Indication: Hodgkin^s disease nodular sclerosis stage IV
     Dosage: ESCALATED BEACOPP REGIMEN (4 CYCLES)
     Dates: start: 2006
  10. PREDNISONE [Suspect]
     Active Substance: PREDNISONE
     Dosage: ESCALATED BEACOPP REGIMEN (4 CYCLES)
     Dates: start: 200602, end: 200604
  11. ETOPOSIDE [Suspect]
     Active Substance: ETOPOSIDE
     Indication: Hodgkin^s disease nodular sclerosis stage IV
     Dosage: ESCALATED BEACOPP REGIMEN (4 CYCLES)
     Dates: start: 200602, end: 200604
  12. ETOPOSIDE [Suspect]
     Active Substance: ETOPOSIDE
     Indication: Non-Hodgkin^s lymphoma
     Dosage: ESCALATED BEACOPP REGIMEN (4 CYCLES)
     Dates: start: 2006
  13. CYCLOPHOSPHAMIDE [Suspect]
     Active Substance: CYCLOPHOSPHAMIDE
     Indication: Hodgkin^s disease nodular sclerosis stage IV
     Dosage: ESCALATED BEACOPP REGIMEN (4 CYCLES)
     Dates: start: 2006
  14. CYCLOPHOSPHAMIDE [Suspect]
     Active Substance: CYCLOPHOSPHAMIDE
     Dosage: ESCALATED BEACOPP REGIMEN (4 CYCLES)
     Dates: start: 200602, end: 200604
  15. LAMIVUDINE [Suspect]
     Active Substance: LAMIVUDINE
     Dosage: UNK

REACTIONS (7)
  - Hepatitis B reactivation [Recovered/Resolved]
  - Jaundice [Recovered/Resolved]
  - Generalised oedema [Recovered/Resolved]
  - Hepatic encephalopathy [Recovered/Resolved]
  - Fatigue [Recovered/Resolved]
  - Hepatic failure [Recovered/Resolved]
  - Decreased appetite [Recovered/Resolved]

NARRATIVE: CASE EVENT DATE: 20060101
